FAERS Safety Report 13238268 (Version 1)
Quarter: 2017Q1

REPORT INFORMATION
  Report Type: Spontaneous
  Country: CA (occurrence: CA)
  Receive Date: 20170216
  Receipt Date: 20170216
  Transmission Date: 20170428
  Serious: Yes (Hospitalization)
  Sender: FDA-Public Use
  Company Number: CA-GILEAD-2015-0139693

PATIENT
  Age: 21 Year
  Sex: Female
  Weight: 48 kg

DRUGS (2)
  1. AMBRISENTAN [Suspect]
     Active Substance: AMBRISENTAN
     Indication: PERIPHERAL ARTERIAL OCCLUSIVE DISEASE
  2. AMBRISENTAN [Suspect]
     Active Substance: AMBRISENTAN
     Indication: PULMONARY ARTERIAL HYPERTENSION
     Dosage: 5 MG, 1D
     Route: 048
     Dates: start: 20150123

REACTIONS (6)
  - Cough [Not Recovered/Not Resolved]
  - Nausea [Not Recovered/Not Resolved]
  - Tonsillar disorder [Not Recovered/Not Resolved]
  - Headache [Recovered/Resolved]
  - Lethargy [Unknown]
  - Malaise [Unknown]

NARRATIVE: CASE EVENT DATE: 20150123
